FAERS Safety Report 7094664-4 (Version None)
Quarter: 2010Q4

REPORT INFORMATION
  Report Type: 
  Country: None (occurrence: None)
  Receive Date: 20101110
  Receipt Date: 20101108
  Transmission Date: 20110411
  Serious: Yes (Death)
  Sender: FDA-Public Use
  Company Number: FR-PFIZER INC-2010142097

PATIENT
  Age: 60 Year
  Sex: Male

DRUGS (15)
  1. ZYVOXID [Suspect]
     Indication: SOFT TISSUE NECROSIS
     Dosage: 600 MG, 2X/DAY
     Dates: start: 20100601, end: 20100709
  2. TAZOCILLINE [Suspect]
     Indication: SOFT TISSUE NECROSIS
     Dosage: 4 G, 3X/DAY
     Dates: start: 20100624, end: 20100709
  3. CANCIDAS [Suspect]
     Indication: SEPTIC SHOCK
     Dosage: UNK
     Dates: start: 20100624
  4. TIENAM [Suspect]
     Indication: SOFT TISSUE NECROSIS
     Dosage: UNK
     Dates: start: 20100601, end: 20100709
  5. CELLCEPT [Concomitant]
  6. SOLU-MEDROL [Concomitant]
  7. SKENAN [Concomitant]
  8. NEXIUM [Concomitant]
  9. ZOMETA [Concomitant]
  10. ELISOR [Concomitant]
  11. DELURSAN [Concomitant]
  12. IMODIUM ^JANSSEN-CILAG^ [Concomitant]
  13. STILNOX [Concomitant]
  14. PRIMPERAN [Concomitant]
  15. CALCIPARINE ^DIFREX^ [Concomitant]

REACTIONS (1)
  - HEPATITIS ACUTE [None]
